FAERS Safety Report 16618808 (Version 3)
Quarter: 2019Q4

REPORT INFORMATION
  Report Type: Report from Study
  Country: None (occurrence: JP)
  Receive Date: 20190723
  Receipt Date: 20191026
  Transmission Date: 20200122
  Serious: Yes (Hospitalization, Other)
  Sender: FDA-Public Use
  Company Number: JP-ABBVIE-18S-087-2549565-00

PATIENT
  Age: 72 Year
  Sex: Female
  Weight: 48 kg

DRUGS (5)
  1. DUODOPA [Suspect]
     Active Substance: CARBIDOPA\LEVODOPA
     Dosage: MD: 13 ML CD: 4.0 ML/HR ? 16 HRS ED: 2.5 ML/UNIT ? 3 TIMES
     Route: 050
     Dates: start: 20190304
  2. CARBIDOPA, LEVODOPA AND ENTACAPONE [Concomitant]
     Active Substance: CARBIDOPA\ENTACAPONE\LEVODOPA
     Indication: PARKINSON^S DISEASE
     Route: 048
  3. CARBIDOPA HYDRATE-LEVODOPA MIXT [Concomitant]
     Indication: PRODUCT USED FOR UNKNOWN INDICATION
     Route: 048
  4. DUODOPA [Suspect]
     Active Substance: CARBIDOPA\LEVODOPA
     Indication: PARKINSON^S DISEASE
     Dosage: MD: 13 ML CD: 3.5 ML / HR ? 16 HRS ED: 3.2 ML / UNIT ? 3
     Route: 050
     Dates: start: 20180313, end: 20190304
  5. ROTIGOTINE [Concomitant]
     Active Substance: ROTIGOTINE
     Indication: PRODUCT USED FOR UNKNOWN INDICATION
     Route: 062

REACTIONS (7)
  - Stoma site discharge [Not Recovered/Not Resolved]
  - Therapeutic response shortened [Unknown]
  - Thyroid operation [Unknown]
  - Calcium deficiency [Unknown]
  - Incorrect route of product administration [Unknown]
  - Musculoskeletal stiffness [Unknown]
  - Incorrect dose administered [Unknown]

NARRATIVE: CASE EVENT DATE: 201906
